FAERS Safety Report 5114006-0 (Version None)
Quarter: 2006Q3

REPORT INFORMATION
  Report Type: 
  Country: None (occurrence: None)
  Receive Date: 20060925
  Receipt Date: 20060915
  Transmission Date: 20061208
  Serious: Yes (Other)
  Sender: FDA-Public Use
  Company Number: 2006AP04391

PATIENT

DRUGS (1)
  1. ATACAND HCT [Suspect]
     Dosage: 16 + 12.5 MG
     Route: 048

REACTIONS (1)
  - LUPUS-LIKE SYNDROME [None]
